FAERS Safety Report 6714579-8 (Version None)
Quarter: 2010Q2

REPORT INFORMATION
  Report Type: 
  Country: None (occurrence: None)
  Receive Date: 20100507
  Receipt Date: 20100428
  Transmission Date: 20101027
  Serious: Yes (Hospitalization, Disabling)
  Sender: FDA-Public Use
  Company Number: AT-BIOGENIDEC-2010BI011388

PATIENT
  Age: 35 Year
  Sex: Female
  Weight: 65 kg

DRUGS (2)
  1. TYSABRI [Suspect]
     Indication: MULTIPLE SCLEROSIS
     Route: 042
     Dates: start: 20080101, end: 20100101
  2. GABAPENTIN [Concomitant]
     Indication: PAIN
     Route: 048
     Dates: start: 20090101

REACTIONS (1)
  - FACIAL PARESIS [None]
